FAERS Safety Report 7654608-0 (Version None)
Quarter: 2011Q3

REPORT INFORMATION
  Report Type: 
  Country: None (occurrence: None)
  Receive Date: 20110803
  Receipt Date: 20110725
  Transmission Date: 20111222
  Serious: Yes (Other)
  Sender: FDA-Public Use
  Company Number: US-ASTRAZENECA-2011SE44252

PATIENT
  Age: 62 Year
  Sex: Female
  Weight: 60.8 kg

DRUGS (1)
  1. METOPROLOL SUCCINATE [Suspect]
     Indication: HYPERTENSION
     Dates: start: 20101202, end: 20110614

REACTIONS (3)
  - ARTERIAL OCCLUSIVE DISEASE [None]
  - PERIPHERAL ARTERIAL OCCLUSIVE DISEASE [None]
  - RAYNAUD'S PHENOMENON [None]
